FAERS Safety Report 9435921 (Version 4)
Quarter: 2013Q3

REPORT INFORMATION
  Report Type: Spontaneous
  Country: US (occurrence: US)
  Receive Date: 20130801
  Receipt Date: 20130926
  Transmission Date: 20140515
  Serious: Yes (Death, Hospitalization, Other)
  Sender: FDA-Public Use
  Company Number: US-BAXTER-2013BAX030119

PATIENT
  Age: 79 Year
  Sex: Male

DRUGS (11)
  1. DIANEAL LOW CALCIUM [Suspect]
     Indication: PERITONEAL DIALYSIS
     Route: 033
     Dates: start: 20090805, end: 20130721
  2. DIANEAL LOW CALCIUM [Suspect]
     Indication: RENAL FAILURE CHRONIC
     Route: 033
     Dates: start: 20130729, end: 20130801
  3. DIANEAL LOW CALCIUM [Suspect]
     Route: 033
     Dates: start: 20130805, end: 201309
  4. DIANEAL LOW CALCIUM [Suspect]
     Indication: PERITONEAL DIALYSIS
     Route: 033
     Dates: end: 20130721
  5. DIANEAL LOW CALCIUM [Suspect]
     Route: 033
     Dates: start: 20130729, end: 20130801
  6. DIANEAL LOW CALCIUM [Suspect]
     Route: 033
     Dates: start: 20130804
  7. DIANEAL LOW CALCIUM (ULTRABAG) [Suspect]
     Indication: PERITONEAL DIALYSIS
     Route: 033
     Dates: start: 201309, end: 20130915
  8. DIANEAL LOW CALCIUM (ULTRABAG) [Suspect]
     Indication: RENAL FAILURE CHRONIC
  9. EXTRANEAL [Suspect]
     Indication: PERITONEAL DIALYSIS
     Route: 033
     Dates: end: 20130721
  10. EXTRANEAL [Suspect]
     Indication: RENAL FAILURE CHRONIC
     Route: 033
     Dates: start: 20130729, end: 20130801
  11. EXTRANEAL [Suspect]
     Route: 033
     Dates: start: 20130805, end: 201309

REACTIONS (11)
  - Hypotension [Fatal]
  - Peritonitis [Fatal]
  - Cardiovascular disorder [Fatal]
  - Glioblastoma [Not Recovered/Not Resolved]
  - Sepsis [Recovering/Resolving]
  - Multimorbidity [Unknown]
  - Prostate cancer [Unknown]
  - Hip fracture [Unknown]
  - Fall [Unknown]
  - Fluid retention [Unknown]
  - Procedural pain [Recovering/Resolving]
